FAERS Safety Report 16325192 (Version 4)
Quarter: 2019Q4

REPORT INFORMATION
  Report Type: Spontaneous
  Country: US (occurrence: US)
  Receive Date: 20190517
  Receipt Date: 20191211
  Transmission Date: 20200122
  Serious: Yes (Other)
  Sender: FDA-Public Use
  Company Number: US-ENDO PHARMACEUTICALS INC-2019-104686

PATIENT
  Age: 45 Year
  Sex: Male
  Weight: 95.24 kg

DRUGS (7)
  1. XIAFLEX [Suspect]
     Active Substance: COLLAGENASE CLOSTRIDIUM HISTOLYTICUM
     Dosage: UNK UNKNOWN, UNKNOWN (CYCLE 2, INJECTION 1 + 2)
     Route: 065
     Dates: start: 2019
  2. XIAFLEX [Suspect]
     Active Substance: COLLAGENASE CLOSTRIDIUM HISTOLYTICUM
     Dosage: UNK UNKNOWN, UNKNOWN (CYCLE 4, INJECTION 1)
     Route: 065
     Dates: start: 20191104
  3. XIAFLEX [Suspect]
     Active Substance: COLLAGENASE CLOSTRIDIUM HISTOLYTICUM
     Dosage: 0.58 MG, UNKNOWN
     Route: 065
  4. XIAFLEX [Suspect]
     Active Substance: COLLAGENASE CLOSTRIDIUM HISTOLYTICUM
     Dosage: UNK UNKNOWN, UNKNOWN (CYCLE 1, INJECTION 1 + 2)
     Route: 065
  5. XIAFLEX [Suspect]
     Active Substance: COLLAGENASE CLOSTRIDIUM HISTOLYTICUM
     Indication: PEYRONIE^S DISEASE
     Dosage: UNK UNKNOWN, UNKNOWN (CYCLE 4,INJECTION 2)
     Route: 065
     Dates: start: 20191107
  6. XIAFLEX [Suspect]
     Active Substance: COLLAGENASE CLOSTRIDIUM HISTOLYTICUM
     Dosage: UNK UNK, UNKNOWN  (CYCLE 3, INJECTION 1)
     Route: 065
     Dates: start: 20190717
  7. XIAFLEX [Suspect]
     Active Substance: COLLAGENASE CLOSTRIDIUM HISTOLYTICUM
     Dosage: UNK UNKNOWN, UNKNOWN (CYCLE 3, INJECTION 2)
     Route: 065
     Dates: start: 20190719

REACTIONS (7)
  - Penile contusion [Not Recovered/Not Resolved]
  - Inappropriate schedule of product administration [Unknown]
  - Corpora cavernosa surgery [Recovered/Resolved]
  - Penile swelling [Not Recovered/Not Resolved]
  - Genital contusion [Not Recovered/Not Resolved]
  - Penile pain [Unknown]
  - Fracture of penis [Recovered/Resolved]

NARRATIVE: CASE EVENT DATE: 2019
